FAERS Safety Report 9372102 (Version 1)
Quarter: 2013Q2

REPORT INFORMATION
  Report Type: Report from Study
  Country: US (occurrence: US)
  Receive Date: 20130627
  Receipt Date: 20130627
  Transmission Date: 20140414
  Serious: Yes (Death)
  Sender: FDA-Public Use
  Company Number: US-MYLANLABS-2012S1014931

PATIENT
  Age: 60 Year
  Sex: Female

DRUGS (8)
  1. CLOZAPINE TABLETS [Suspect]
  2. LORTAB [Concomitant]
     Dosage: 5/500MG
  3. SPIRONOLACTONE [Concomitant]
  4. LANOXIN [Concomitant]
  5. GABAPENTIN [Concomitant]
  6. DOXYCYCLINE [Concomitant]
  7. TYLENOL W/CODEINE [Concomitant]
  8. CIPRO [Concomitant]

REACTIONS (1)
  - Death [Fatal]
